FAERS Safety Report 16866471 (Version 1)
Quarter: 2019Q3

REPORT INFORMATION
  Report Type: Spontaneous
  Country: US (occurrence: None)
  Receive Date: 20190923
  Receipt Date: 20190923
  Transmission Date: 20191005
  Serious: Yes (Other)
  Sender: FDA-Public Use
  Company Number: 2019-168546

PATIENT
  Sex: Female

DRUGS (1)
  1. CITRACAL CALCIUM + D SLOW RELEASE 1200 (CALCIUM CARBONATE, CALCIUM CITRATE, VITAMIN D, MAGNESIUM HYDROXIDE) FILM-COATED TABLET [Suspect]
     Active Substance: CALCIUM CARBONATE\CALCIUM CITRATE\MAGNESIUM HYDROXIDE\VITAMIN D
     Indication: NUTRITIONAL SUPPLEMENTATION
     Route: 048

REACTIONS (1)
  - Myocardial infarction [None]
